FAERS Safety Report 7006451-3 (Version None)
Quarter: 2010Q3

REPORT INFORMATION
  Report Type: 
  Country: None (occurrence: None)
  Receive Date: 20100921
  Receipt Date: 20100913
  Transmission Date: 20110219
  Serious: Yes (Life-Threatening)
  Sender: FDA-Public Use
  Company Number: JP-MERCK-1004USA01064

PATIENT
  Age: 79 Year
  Sex: Male
  Weight: 70 kg

DRUGS (7)
  1. JANUVIA [Suspect]
     Indication: DIABETES MELLITUS
     Route: 048
     Dates: start: 20100216
  2. WARFARIN POTASSIUM [Suspect]
     Indication: ATRIAL FIBRILLATION
     Route: 048
     Dates: start: 20020404, end: 20100330
  3. WARFARIN POTASSIUM [Suspect]
     Route: 048
     Dates: start: 20100331
  4. METFORMIN HCL [Suspect]
     Indication: DIABETES MELLITUS
     Route: 048
     Dates: start: 19900404
  5. FLIVAS [Suspect]
     Indication: BENIGN PROSTATIC HYPERPLASIA
     Route: 048
     Dates: start: 20081016
  6. MEVALOTIN [Suspect]
     Indication: LIPIDS ABNORMAL
     Route: 048
     Dates: start: 20090928
  7. NOVORAPID [Suspect]
     Indication: DIABETES MELLITUS
     Dosage: TWO UNITS IN FRONT OF THE SUPPER 16 UNITS BEFORE BREAKFAST
     Route: 058
     Dates: start: 20090615

REACTIONS (1)
  - PROTHROMBIN TIME PROLONGED [None]
